FAERS Safety Report 10652089 (Version 1)
Quarter: 2014Q4

REPORT INFORMATION
  Report Type: Spontaneous
  Country: US (occurrence: None)
  Receive Date: 20141205
  Receipt Date: 20141205
  Transmission Date: 20150529
  Serious: Yes (Hospitalization, Other)
  Sender: FDA-Public Use
  Company Number: 2014SUN01929

PATIENT
  Age: 30 Year
  Sex: Male
  Weight: 97.5 kg

DRUGS (1)
  1. OXCARBAZEPINE TABLETS, 600 MG (OXCARBAZEPINE) TABLET, 600MG [Suspect]
     Active Substance: OXCARBAZEPINE
     Indication: GENERALISED TONIC-CLONIC SEIZURE
     Route: 048

REACTIONS (2)
  - Drug ineffective [None]
  - Seizure [None]

NARRATIVE: CASE EVENT DATE: 201407
